FAERS Safety Report 12156136 (Version 1)
Quarter: 2016Q1

REPORT INFORMATION
  Report Type: Spontaneous
  Country: US (occurrence: US)
  Receive Date: 20160307
  Receipt Date: 20160307
  Transmission Date: 20160526
  Serious: No
  Sender: FDA-Public Use
  Company Number: US-BAYER-2016-043410

PATIENT

DRUGS (1)
  1. CLARITIN REDITABS [Suspect]
     Active Substance: LORATADINE

REACTIONS (1)
  - Malaise [None]
